FAERS Safety Report 9999073 (Version 1)
Quarter: 2014Q1

REPORT INFORMATION
  Report Type: Spontaneous
  Country: US (occurrence: None)
  Receive Date: 20140311
  Receipt Date: 20140311
  Transmission Date: 20141002
  Serious: Yes (Other)
  Sender: FDA-Public Use
  Company Number: None

PATIENT
  Age: 53 Year
  Sex: Female
  Weight: 158.76 kg

DRUGS (1)
  1. GABAPENTIN [Suspect]
     Indication: PAIN
     Dosage: 2 PILLS THREE TIMES DAILY
     Route: 048

REACTIONS (3)
  - Product substitution issue [None]
  - Drug effect incomplete [None]
  - Drug dispensing error [None]
